FAERS Safety Report 9295751 (Version 1)
Quarter: 2013Q2

REPORT INFORMATION
  Report Type: Spontaneous
  Country: BR (occurrence: None)
  Receive Date: 20130514
  Receipt Date: 20130514
  Transmission Date: 20140414
  Serious: Yes (Hospitalization)
  Sender: FDA-Public Use
  Company Number: DSJ-2013-10081

PATIENT
  Age: 78 Year
  Sex: Female
  Weight: 50 kg

DRUGS (6)
  1. BENICAR [Suspect]
     Indication: HYPERTENSION
     Route: 048
     Dates: start: 2011
  2. BISOPROLOL [Concomitant]
  3. FUROSEMIDE [Concomitant]
  4. ATORVASTATIN [Concomitant]
  5. TRIMETAZIDINE [Concomitant]
  6. HUMAN INSULIN [Concomitant]

REACTIONS (1)
  - Angina pectoris [None]
